FAERS Safety Report 4908733-5 (Version None)
Quarter: 2006Q1

REPORT INFORMATION
  Report Type: 
  Country: None (occurrence: None)
  Receive Date: 20060210
  Receipt Date: 20051102
  Transmission Date: 20060701
  Serious: No
  Sender: FDA-Public Use
  Company Number: US-GLAXOSMITHKLINE-A0580624A

PATIENT
  Age: 43 Year
  Sex: Male

DRUGS (3)
  1. PAXIL CR [Suspect]
     Indication: OBSESSIVE-COMPULSIVE DISORDER
     Dosage: 75MG PER DAY
     Route: 048
     Dates: start: 20050901
  2. PAROXETINE HCL [Suspect]
     Indication: OBSESSIVE-COMPULSIVE DISORDER
     Dosage: 60MG PER DAY
     Route: 048
     Dates: start: 20040101, end: 20040101
  3. MULTIPLE MEDICATIONS [Concomitant]
     Route: 065

REACTIONS (1)
  - DRUG INEFFECTIVE [None]
